FAERS Safety Report 8804445 (Version 1)
Quarter: 2012Q4

REPORT INFORMATION
  Report Type: 
  Country: US (occurrence: US)
  Receive Date: 20120924
  Receipt Date: 20120924
  Transmission Date: 20130627
  Serious: Yes (Hospitalization)
  Sender: FDA-Public Use
  Company Number: US-BAYER-2012-097403

PATIENT
  Age: 36 Year
  Sex: Female
  Weight: 81.63 kg

DRUGS (8)
  1. OCELLA [Suspect]
     Indication: MENSTRUAL CYCLE MANAGEMENT
     Dosage: UNK
     Dates: start: 200809, end: 20110404
  2. OCELLA [Suspect]
     Indication: PREMENSTRUAL SYNDROME
  3. YASMIN [Suspect]
  4. KETOROLAC [Concomitant]
     Dosage: 10 mg, UNK
  5. ACETAMINOPHEN [Concomitant]
     Dosage: UNK
  6. ACETAMINOPHEN W/CODEINE [Concomitant]
     Dosage: UNK
  7. PERCOCET [Concomitant]
     Indication: ANALGESIC THERAPY
     Dosage: UNK
  8. MULTIVITAMINS [Concomitant]
     Dosage: UNK
     Dates: end: 20110404

REACTIONS (5)
  - Deep vein thrombosis [None]
  - Pain in extremity [None]
  - Oedema peripheral [None]
  - Fear [None]
  - Anxiety [None]
